FAERS Safety Report 9696107 (Version 6)
Quarter: 2013Q4

REPORT INFORMATION
  Report Type: Spontaneous
  Country: CN (occurrence: None)
  Receive Date: 20131115
  Receipt Date: 20131211
  Transmission Date: 20140711
  Serious: Yes (Life-Threatening, Hospitalization)
  Sender: FDA-Public Use
  Company Number: SYM-2013-12896

PATIENT
  Age: 39 Year
  Sex: Female

DRUGS (10)
  1. 5 FU [Suspect]
     Indication: COLORECTAL CANCER METASTATIC
     Route: 040
     Dates: start: 20131022, end: 20131022
  2. IRINOTECAN [Suspect]
     Indication: COLORECTAL CANCER METASTATIC
     Route: 041
     Dates: start: 20131022, end: 20131022
  3. LEUCOVORIN (FOLINIC ACID) (SOLUTION FOR INFUSION) (FOLINIC ACID) [Suspect]
     Indication: COLORECTAL CANCER METASTATIC
     Route: 041
     Dates: start: 20131022, end: 20131022
  4. BLINDED THERAPY (OTHER THERAPEUTIC PRODUCTS) (SOLUTION FOR INFUSION) (NULL) [Suspect]
     Indication: COLORECTAL CANCER METASTATIC
     Route: 041
     Dates: start: 20131022, end: 20131022
  5. OMEPRAZOLE (OMEPRAZOLE) (OMEPRAZOLE) [Concomitant]
  6. GRANISETRON (GRANISETRON) (GRANISETRON) [Concomitant]
  7. LOPERAMIDE (LOPERAMIDE) (LOPERAMIDE) [Concomitant]
  8. LIDOCAINE (LIDOCAINE) (LIDOCAINE) [Concomitant]
  9. ATROPINE (ATROPINE) (ATROPINE) [Concomitant]
  10. ZOLEDRONIC ACID (ZOLEDRONIC ACID) (ZOLEDRONIC ACID) [Concomitant]

REACTIONS (12)
  - Thrombocytopenia [None]
  - Neutrophilia [None]
  - Acute left ventricular failure [None]
  - Pyrexia [None]
  - Blood pressure increased [None]
  - Sputum discoloured [None]
  - Haemoglobin decreased [None]
  - White blood cell count decreased [None]
  - Feeling cold [None]
  - Productive cough [None]
  - Heart rate increased [None]
  - Respiratory rate increased [None]
